FAERS Safety Report 7459906-1 (Version None)
Quarter: 2011Q2

REPORT INFORMATION
  Report Type: 
  Country: None (occurrence: None)
  Receive Date: 20110504
  Receipt Date: 20110504
  Transmission Date: 20111010
  Serious: No
  Sender: FDA-Public Use
  Company Number: None

PATIENT
  Age: 62 Year
  Sex: Male
  Weight: 185 kg

DRUGS (2)
  1. VICTOZA [Suspect]
     Indication: TYPE 2 DIABETES MELLITUS
     Dosage: 1.2 MG DAILY SQ
     Route: 058
     Dates: start: 20101109, end: 20110503
  2. VICTOZA [Suspect]
     Indication: OBESITY
     Dosage: 1.2 MG DAILY SQ
     Route: 058
     Dates: start: 20101109, end: 20110503

REACTIONS (1)
  - RENAL FAILURE ACUTE [None]
